FAERS Safety Report 4489299-3 (Version None)
Quarter: 2004Q4

REPORT INFORMATION
  Report Type: 
  Country: None (occurrence: None)
  Receive Date: 20041026
  Receipt Date: 20041013
  Transmission Date: 20050328
  Serious: Yes (Hospitalization, Other)
  Sender: FDA-Public Use
  Company Number: HQWYE754014OCT04

PATIENT
  Age: 72 Year
  Sex: Male

DRUGS (2)
  1. CORDARONE [Suspect]
     Indication: ATRIAL FIBRILLATION
     Dosage: 200 MG 1X PER 2 DAY ORAL
     Route: 048
     Dates: start: 20030601
  2. ASPIRIN [Concomitant]

REACTIONS (4)
  - ATRIAL FIBRILLATION [None]
  - DRUG INEFFECTIVE [None]
  - LOW CARDIAC OUTPUT SYNDROME [None]
  - SYNCOPE [None]
